FAERS Safety Report 14292644 (Version 1)
Quarter: 2017Q4

REPORT INFORMATION
  Report Type: Report from Study
  Country: US (occurrence: MX)
  Receive Date: 20171215
  Receipt Date: 20171215
  Transmission Date: 20180321
  Serious: Yes (Death, Other)
  Sender: FDA-Public Use
  Company Number: US-SUNOVION-2017SUN005285

PATIENT
  Age: 86 Year
  Sex: Male

DRUGS (3)
  1. INDACATEROL AND GLYCOPYRROLATE [Suspect]
     Active Substance: GLYCOPYRROLATE\INDACATEROL MALEATE
     Indication: CHRONIC OBSTRUCTIVE PULMONARY DISEASE
     Dosage: 1 DF (110 UG INDACATEROL, 50 UG GLYCOPYRRONIUM), QD
     Route: 055
     Dates: end: 20171201
  2. GLIBENCLAMIDE [Concomitant]
     Active Substance: GLYBURIDE
  3. METFORMIN [Suspect]
     Active Substance: METFORMIN HYDROCHLORIDE
     Indication: PRODUCT USED FOR UNKNOWN INDICATION
     Route: 065

REACTIONS (2)
  - Infarction [Fatal]
  - Expired product administered [Unknown]

NARRATIVE: CASE EVENT DATE: 201708
